FAERS Safety Report 10466393 (Version 3)
Quarter: 2017Q1

REPORT INFORMATION
  Report Type: Report from Study
  Country: JP (occurrence: JP)
  Receive Date: 20140918
  Receipt Date: 20170202
  Transmission Date: 20170428
  Serious: Yes (Death, Life-Threatening, Hospitalization, Other)
  Sender: FDA-Public Use
  Company Number: 2014MPI00857

PATIENT

DRUGS (3)
  1. ADCETRIS [Suspect]
     Active Substance: BRENTUXIMAB VEDOTIN
     Indication: HODGKIN^S DISEASE
  2. ADCETRIS [Suspect]
     Active Substance: BRENTUXIMAB VEDOTIN
     Indication: HODGKIN^S DISEASE
     Dosage: 1.8 MG/KG, UNK
     Route: 041
     Dates: start: 20140630
  3. ANTIHISTAMINES [Concomitant]
     Active Substance: ANTIHISTAMINES NOS

REACTIONS (6)
  - Platelet count decreased [Not Recovered/Not Resolved]
  - Pyrexia [Unknown]
  - Hodgkin^s disease [Fatal]
  - Neutropenia [Recovering/Resolving]
  - Anaemia [Not Recovered/Not Resolved]
  - Fungal infection [Unknown]

NARRATIVE: CASE EVENT DATE: 20140630
